FAERS Safety Report 8003992-7 (Version None)
Quarter: 2011Q4

REPORT INFORMATION
  Report Type: 
  Country: None (occurrence: None)
  Receive Date: 20111222
  Receipt Date: 20111215
  Transmission Date: 20120403
  Serious: Yes (Life-Threatening, Other)
  Sender: FDA-Public Use
  Company Number: CA-ROCHE-1008468

PATIENT
  Sex: Female
  Weight: 64.922 kg

DRUGS (2)
  1. KEPPRA [Concomitant]
  2. AVASTIN [Suspect]
     Indication: GLIOBLASTOMA
     Route: 042
     Dates: start: 20110325, end: 20111017

REACTIONS (3)
  - CONVULSION [None]
  - TUMOUR HAEMORRHAGE [None]
  - NEOPLASM PROGRESSION [None]
